FAERS Safety Report 9729411 (Version 1)
Quarter: 2013Q4

REPORT INFORMATION
  Report Type: Spontaneous
  Country: US (occurrence: US)
  Receive Date: 20131204
  Receipt Date: 20131204
  Transmission Date: 20140711
  Serious: No
  Sender: FDA-Public Use
  Company Number: US-GILEAD-2009-0021192

PATIENT
  Sex: Female
  Weight: 99.79 kg

DRUGS (17)
  1. LETAIRIS [Suspect]
     Indication: PULMONARY ARTERIAL HYPERTENSION
     Route: 048
     Dates: start: 20081007
  2. NORVASC [Concomitant]
  3. LIPITOR [Concomitant]
  4. TRIAMTERENE/HCTZ [Concomitant]
  5. LEVAQUIN [Concomitant]
  6. PREDNISONE [Concomitant]
  7. KLOR-CON [Concomitant]
  8. TRAZODONE [Concomitant]
  9. VICODIN [Concomitant]
  10. IMURAN [Concomitant]
  11. NABUMETONE [Concomitant]
  12. CALCIUM [Concomitant]
  13. NEXIUM [Concomitant]
  14. LEVOXYL [Concomitant]
  15. CRANBERRY + SOFTGEL [Concomitant]
  16. ECHINACEA [Concomitant]
  17. MULTIVITAMIN [Concomitant]

REACTIONS (1)
  - Liver function test abnormal [Unknown]
